FAERS Safety Report 10089882 (Version 1)
Quarter: 2014Q2

REPORT INFORMATION
  Report Type: Report from Study
  Country: US (occurrence: US)
  Receive Date: 20140421
  Receipt Date: 20140421
  Transmission Date: 20141212
  Serious: No
  Sender: FDA-Public Use
  Company Number: US-ABBVIE-13P-163-1149770-00

PATIENT
  Sex: Female

DRUGS (2)
  1. LUPRON DEPOT-PED [Suspect]
     Indication: PRECOCIOUS PUBERTY
     Route: 030
     Dates: start: 201304, end: 201309
  2. LUPRON DEPOT-PED [Suspect]
     Dosage: INCREASED

REACTIONS (1)
  - Hormone level abnormal [Not Recovered/Not Resolved]
